FAERS Safety Report 13128569 (Version 3)
Quarter: 2017Q2

REPORT INFORMATION
  Report Type: Spontaneous
  Country: US (occurrence: US)
  Receive Date: 20170118
  Receipt Date: 20170502
  Transmission Date: 20170830
  Serious: No
  Sender: FDA-Public Use
  Company Number: US-TEVA-726717ACC

PATIENT
  Age: 38 Year
  Sex: Female

DRUGS (24)
  1. COPAXONE [Suspect]
     Active Substance: GLATIRAMER ACETATE
     Dosage: PRE FILLED SYRINGE
     Route: 058
     Dates: start: 2007
  2. HYDROCODONE BITARTRATE AND ACETAMINOPHEN [Concomitant]
     Active Substance: ACETAMINOPHEN\HYDROCODONE BITARTRATE
     Dosage: 7.5-750
  3. ARTIFICIAL TEARS SOLUTION [Concomitant]
     Dosage: SOLUTION
     Route: 047
  4. FLUTICASONE. [Concomitant]
     Active Substance: FLUTICASONE
  5. COPAXONE [Suspect]
     Active Substance: GLATIRAMER ACETATE
     Indication: MULTIPLE SCLEROSIS
     Dosage: PRE FILLED SYRINGE
     Route: 058
     Dates: start: 20100302
  6. COPAXONE [Suspect]
     Active Substance: GLATIRAMER ACETATE
     Dosage: PRE FILLED SYRINGE
     Route: 058
     Dates: start: 2007
  7. HYDROCODONE BITARTRATE AND ACETAMINOPHEN [Concomitant]
     Active Substance: ACETAMINOPHEN\HYDROCODONE BITARTRATE
     Dosage: 5-500 MG
  8. PROCTOZONE CREAM HYROCHLORIDE 2.5% [Concomitant]
  9. RISPERIDONE TABLET [Concomitant]
     Active Substance: RISPERIDONE
  10. DOCOLACE [Concomitant]
  11. RISPERIDONE TABLET [Concomitant]
     Active Substance: RISPERIDONE
  12. IBUPROFEN. [Concomitant]
     Active Substance: IBUPROFEN
  13. ZOLOFT [Concomitant]
     Active Substance: SERTRALINE HYDROCHLORIDE
  14. ZONISAMIDE. [Concomitant]
     Active Substance: ZONISAMIDE
  15. SUMATRIPTAN. [Concomitant]
     Active Substance: SUMATRIPTAN
  16. BACLOFEN. [Concomitant]
     Active Substance: BACLOFEN
  17. CLINDAMYCIN. [Concomitant]
     Active Substance: CLINDAMYCIN
  18. QVAR [Concomitant]
     Active Substance: BECLOMETHASONE DIPROPIONATE
  19. AZITHROMYCIN ANHYDROUS. [Concomitant]
     Active Substance: AZITHROMYCIN ANHYDROUS
  20. BENZTROPINE [Concomitant]
     Active Substance: BENZTROPINE
  21. GABAPENTIN. [Concomitant]
     Active Substance: GABAPENTIN
  22. RISPERIDONE TABLET [Concomitant]
     Active Substance: RISPERIDONE
  23. OXYBUTYNIN [Concomitant]
     Active Substance: OXYBUTYNIN
  24. SERTRALINE [Concomitant]
     Active Substance: SERTRALINE HYDROCHLORIDE

REACTIONS (8)
  - Fall [Unknown]
  - Decreased appetite [Not Recovered/Not Resolved]
  - Memory impairment [Not Recovered/Not Resolved]
  - Fatigue [Not Recovered/Not Resolved]
  - Wrist fracture [Unknown]
  - Visual impairment [Unknown]
  - Personality change [Not Recovered/Not Resolved]
  - Fall [Unknown]

NARRATIVE: CASE EVENT DATE: 201610
